FAERS Safety Report 24894628 (Version 1)
Quarter: 2025Q1

REPORT INFORMATION
  Report Type: Spontaneous
  Country: CA (occurrence: CA)
  Receive Date: 20250128
  Receipt Date: 20250128
  Transmission Date: 20250408
  Serious: Yes (Hospitalization)
  Sender: ROCHE
  Company Number: US-002147023-NVSC2025CA010958

PATIENT
  Age: 85 Year
  Sex: Male

DRUGS (1)
  1. OMALIZUMAB [Suspect]
     Active Substance: OMALIZUMAB
     Indication: Asthma
     Dosage: 375 MG, QW (1 EVERY 2 WEEKS)
     Route: 065

REACTIONS (2)
  - Hypervolaemia [Unknown]
  - Urinary retention [Unknown]
